FAERS Safety Report 4583310-7 (Version None)
Quarter: 2005Q1

REPORT INFORMATION
  Report Type: 
  Country: None (occurrence: None)
  Receive Date: 20050125
  Receipt Date: 20040923
  Transmission Date: 20050727
  Serious: No
  Sender: FDA-Public Use
  Company Number: USA040464598

PATIENT
  Age: 82 Year
  Sex: Female

DRUGS (7)
  1. FORTEO [Suspect]
     Dates: start: 20040101
  2. ALDACTONE [Concomitant]
  3. NEXIUM [Concomitant]
  4. ZOLOFT [Concomitant]
  5. ELAVIL [Concomitant]
  6. STOOL SOFTENER (DOCUSATE SODIUM) [Concomitant]
  7. K-TAB [Concomitant]

REACTIONS (3)
  - BONE PAIN [None]
  - CONSTIPATION [None]
  - HAND DEFORMITY [None]
